FAERS Safety Report 6474914-5 (Version None)
Quarter: 2009Q4

REPORT INFORMATION
  Report Type: 
  Country: None (occurrence: None)
  Receive Date: 20091204
  Receipt Date: 20091124
  Transmission Date: 20100525
  Serious: Yes (Other)
  Sender: FDA-Public Use
  Company Number: JP-WATSON-2009-10126

PATIENT
  Age: 82 Year
  Sex: Male

DRUGS (4)
  1. RAPAFLO [Suspect]
     Indication: BENIGN PROSTATIC HYPERPLASIA
     Dosage: 8 MG, DAILY
  2. DISOPYRAMIDE (WATSON LABORATORIES) [Suspect]
     Indication: ARRHYTHMIA
     Dosage: 300 MG, DAILY
  3. GARENOXACIN [Suspect]
     Indication: PNEUMONIA
     Dosage: 800 MG, DAILY
  4. BICALUTAMIDE [Suspect]
     Indication: PROSTATE CANCER
     Dosage: 80 MG, DAILY

REACTIONS (3)
  - DRUG INTERACTION [None]
  - TORSADE DE POINTES [None]
  - VENTRICULAR TACHYCARDIA [None]
